FAERS Safety Report 7788484-2 (Version None)
Quarter: 2011Q3

REPORT INFORMATION
  Report Type: 
  Country: None (occurrence: None)
  Receive Date: 20110928
  Receipt Date: 20110916
  Transmission Date: 20111222
  Serious: Yes (Death, Hospitalization)
  Sender: FDA-Public Use
  Company Number: GER/SWE/11/0021326

PATIENT
  Age: 84 Year
  Sex: Male

DRUGS (9)
  1. SIMVASTATIN [Concomitant]
  2. ACETYLSALICYLIC ACID SRT [Suspect]
     Indication: ACUTE MYOCARDIAL INFARCTION
     Dosage: 75 MG, 1 IN 1 D, ORAL
     Route: 048
     Dates: end: 20110725
  3. CLOPIDOGREL [Suspect]
     Indication: ACUTE MYOCARDIAL INFARCTION
     Dosage: 75 MG, ORAL
     Route: 048
     Dates: start: 20110720, end: 20110728
  4. IMPUGAN (FUROSEMIDE) [Concomitant]
  5. CITALOPRAM HYDROBROMIDE [Suspect]
     Indication: PRODUCT USED FOR UNKNOWN INDICATION
     Dosage: ORAL
     Route: 048
     Dates: end: 20110731
  6. ARIXTRA [Suspect]
     Indication: HYPERTENSION
     Dosage: 1 DOSAGE FORMS, 1 IN 1 D, , SUBCUTANEOUS
     Route: 058
     Dates: start: 20110720, end: 20110726
  7. ARIXTRA [Suspect]
     Indication: ACUTE MYOCARDIAL INFARCTION
     Dosage: 1 DOSAGE FORMS, 1 IN 1 D, , SUBCUTANEOUS
     Route: 058
     Dates: start: 20110720, end: 20110726
  8. METOPROLOL TARTRATE [Concomitant]
  9. ABSENOR (VALPROIC ACID) [Concomitant]

REACTIONS (6)
  - HAEMOGLOBIN DECREASED [None]
  - GENERAL PHYSICAL HEALTH DETERIORATION [None]
  - HAEMORRHAGE [None]
  - ACUTE MYOCARDIAL INFARCTION [None]
  - MUSCLE SPASMS [None]
  - ENTEROCOCCUS TEST POSITIVE [None]
